FAERS Safety Report 10597765 (Version 1)
Quarter: 2014Q4

REPORT INFORMATION
  Report Type: Spontaneous
  Country: DE (occurrence: DE)
  Receive Date: 20141121
  Receipt Date: 20141121
  Transmission Date: 20150529
  Serious: Yes (Congenital Anomaly, Other)
  Sender: FDA-Public Use
  Company Number: DE-JNJFOC-20141108339

PATIENT
  Age: 0 Day
  Sex: Male
  Weight: 3.01 kg

DRUGS (1)
  1. SIMPONI [Suspect]
     Active Substance: GOLIMUMAB
     Indication: COLITIS ULCERATIVE
     Dosage: PARENT DOSING
     Route: 064
     Dates: start: 20131206, end: 20140826

REACTIONS (4)
  - Haematochezia [Recovered/Resolved]
  - Neonatal respiratory depression [Recovered/Resolved]
  - Atrial septal defect [Unknown]
  - Foetal exposure during pregnancy [Recovered/Resolved]

NARRATIVE: CASE EVENT DATE: 20140825
